FAERS Safety Report 5977690-5 (Version None)
Quarter: 2008Q4

REPORT INFORMATION
  Report Type: 
  Country: None (occurrence: None)
  Receive Date: 20081203
  Receipt Date: 20081125
  Transmission Date: 20090506
  Serious: Yes (Hospitalization)
  Sender: FDA-Public Use
  Company Number: FR-ROCHE-599686

PATIENT
  Sex: Male

DRUGS (1)
  1. RIVOTRIL [Suspect]
     Indication: EPILEPSY
     Route: 048

REACTIONS (1)
  - RESPIRATORY DISORDER [None]
